FAERS Safety Report 4377633-4 (Version None)
Quarter: 2004Q2

REPORT INFORMATION
  Report Type: 
  Country: None (occurrence: None)
  Receive Date: 20040615
  Receipt Date: 20040603
  Transmission Date: 20050107
  Serious: Yes (Other)
  Sender: FDA-Public Use
  Company Number: PHFR2004GB02356

PATIENT
  Age: 49 Year
  Sex: Male

DRUGS (2)
  1. CLOZARIL [Suspect]
     Indication: SCHIZOPHRENIA
     Dosage: 150MG NOCTE AND 125MG MANE
     Route: 048
     Dates: start: 20040520
  2. RISPERIDONE [Suspect]
     Dates: end: 20040501

REACTIONS (19)
  - AGGRESSION [None]
  - AGITATION [None]
  - BODY TEMPERATURE INCREASED [None]
  - CONFUSIONAL STATE [None]
  - DIZZINESS [None]
  - DRUG WITHDRAWAL SYNDROME [None]
  - DYSPHAGIA [None]
  - HYPERHIDROSIS [None]
  - HYPOTENSION [None]
  - MALAISE [None]
  - MUSCLE RIGIDITY [None]
  - MUSCULOSKELETAL STIFFNESS [None]
  - NEUROLEPTIC MALIGNANT SYNDROME [None]
  - PAIN [None]
  - REFUSAL OF EXAMINATION [None]
  - RESTLESSNESS [None]
  - SALIVARY HYPERSECRETION [None]
  - TACHYCARDIA [None]
  - THROAT TIGHTNESS [None]
